FAERS Safety Report 8614748-6 (Version None)
Quarter: 2012Q3

REPORT INFORMATION
  Report Type: 
  Country: None (occurrence: None)
  Receive Date: 20120823
  Receipt Date: 20120817
  Transmission Date: 20120928
  Serious: Yes (Other)
  Sender: FDA-Public Use
  Company Number: US-PFIZER INC-2012202598

PATIENT
  Age: 65 Year
  Sex: Male
  Weight: 80.272 kg

DRUGS (4)
  1. NEURONTIN [Suspect]
     Dosage: 600 MG, 2X/DAY
     Route: 048
     Dates: start: 20120717, end: 20120816
  2. CYMBALTA [Concomitant]
     Dosage: 60 MG, 1X/DAY
  3. ADVICOR [Concomitant]
     Indication: BLOOD CHOLESTEROL INCREASED
     Dosage: UNK
  4. NEURONTIN [Suspect]
     Indication: NERVE INJURY
     Dosage: 300 MG, 2X/DAY
     Route: 048
     Dates: start: 20120703, end: 20120716

REACTIONS (3)
  - EYE OEDEMA [None]
  - LACRIMATION INCREASED [None]
  - IMPAIRED DRIVING ABILITY [None]
